FAERS Safety Report 20525779 (Version 1)
Quarter: 2022Q1

REPORT INFORMATION
  Report Type: Spontaneous
  Country: FR (occurrence: FR)
  Receive Date: 20220228
  Receipt Date: 20220228
  Transmission Date: 20220423
  Serious: Yes (Congenital Anomaly, Other)
  Sender: FDA-Public Use
  Company Number: FR-ABBVIE-22K-056-4292064-00

PATIENT
  Sex: Female

DRUGS (6)
  1. VALPROATE SODIUM [Suspect]
     Active Substance: VALPROATE SODIUM
     Indication: Maternal exposure timing unspecified
     Route: 064
  2. ISOPHANE INSULIN [Concomitant]
     Active Substance: INSULIN NOS
     Indication: Maternal exposure timing unspecified
  3. NOVORAPID [Concomitant]
     Active Substance: INSULIN ASPART
     Indication: Maternal exposure timing unspecified
  4. FERROUS SULFATE [Concomitant]
     Active Substance: FERROUS SULFATE
     Indication: Maternal exposure timing unspecified
  5. FOLIC ACID [Concomitant]
     Active Substance: FOLIC ACID
     Indication: Maternal exposure timing unspecified
  6. INSULIN NOS [Concomitant]
     Active Substance: INSULIN NOS
     Indication: Maternal exposure timing unspecified

REACTIONS (30)
  - Dysmorphism [Unknown]
  - Respiratory distress [Unknown]
  - Heart disease congenital [Unknown]
  - Ear, nose and throat disorder [Unknown]
  - Initial insomnia [Unknown]
  - Stress [Unknown]
  - Pulmonary malformation [Unknown]
  - Language disorder [Unknown]
  - Stress [Unknown]
  - Initial insomnia [Unknown]
  - Psychomotor retardation [Unknown]
  - Motor developmental delay [Unknown]
  - Communication disorder [Unknown]
  - Behaviour disorder [Unknown]
  - Language disorder [Unknown]
  - Speech disorder developmental [Unknown]
  - Intellectual disability [Unknown]
  - Psychomotor skills impaired [Unknown]
  - Motor dysfunction [Unknown]
  - Developmental delay [Unknown]
  - Anxiety [Unknown]
  - Disturbance in attention [Unknown]
  - Disturbance in attention [Unknown]
  - Deafness [Unknown]
  - Insomnia [Unknown]
  - Anxiety [Unknown]
  - Enuresis [Unknown]
  - Aggression [Unknown]
  - Learning disorder [Unknown]
  - Foetal exposure during pregnancy [Unknown]

NARRATIVE: CASE EVENT DATE: 20131001
